FAERS Safety Report 8521743-4 (Version None)
Quarter: 2012Q3

REPORT INFORMATION
  Report Type: 
  Country: None (occurrence: None)
  Receive Date: 20120719
  Receipt Date: 20120717
  Transmission Date: 20120928
  Serious: Yes (Death, Hospitalization)
  Sender: FDA-Public Use
  Company Number: PHHY2012BR061271

PATIENT
  Age: 75 Year
  Sex: Male

DRUGS (3)
  1. FOLINIC ACID [Concomitant]
     Indication: COLON CANCER
     Dosage: 200 MG/M2, UNK
     Dates: start: 20090601
  2. FLUOROURACIL [Concomitant]
     Indication: COLON CANCER
     Dosage: 2400 MG/M2, UNK
     Dates: start: 20090601
  3. OXALIPLATIN [Suspect]
     Indication: GASTRIC CANCER
     Dosage: 85 MG/M2, UNK
     Dates: start: 20090601

REACTIONS (8)
  - PULMONARY FIBROSIS [None]
  - INTERSTITIAL LUNG DISEASE [None]
  - PNEUMOTHORAX [None]
  - LUNG INFILTRATION [None]
  - NASOPHARYNGITIS [None]
  - DYSPNOEA [None]
  - RESPIRATORY FAILURE [None]
  - EMPHYSEMA [None]
